FAERS Safety Report 7406932-4 (Version None)
Quarter: 2011Q2

REPORT INFORMATION
  Report Type: 
  Country: None (occurrence: None)
  Receive Date: 20110411
  Receipt Date: 20110330
  Transmission Date: 20111010
  Serious: Yes (Hospitalization)
  Sender: FDA-Public Use
  Company Number: JP-BAYER-2011-027114

PATIENT
  Age: 57 Year
  Sex: Male

DRUGS (18)
  1. ASPIRIN [Suspect]
     Dosage: 100 MG, QD
     Route: 048
     Dates: start: 20070101
  2. TAKA-DIASTASE [Concomitant]
     Dosage: 1.3 G, TID
     Route: 048
  3. METHAPHYLLIN [Concomitant]
     Dosage: 1 DF, TID
     Route: 048
  4. DROXIDOPA [Concomitant]
     Dosage: 100 MG, PRN
     Route: 048
  5. ALLOZYM [Concomitant]
     Dosage: 100 MG, QD
     Route: 048
  6. EPHOLIN [Concomitant]
     Dosage: 5 MG, TID
     Route: 048
  7. THYRADIN S [Concomitant]
     Dosage: 50 ?G, BID
     Route: 048
  8. CALCIUM LACTATE [Concomitant]
     Dosage: 1 G, TID
     Route: 048
  9. PANALDINE [Concomitant]
     Dosage: 100 MG, BID
     Route: 048
  10. GLUCOBAY OD [Concomitant]
     Dosage: 50 MG, TID
     Route: 048
  11. METLIGINE [Concomitant]
     Dosage: 2 MG, TID
     Route: 048
  12. MUCOSTA [Concomitant]
     Dosage: 100 MG, TID
     Route: 048
  13. CLIMAGEN ES [Concomitant]
     Dosage: 10 MG, QD
     Route: 048
  14. ROCALTROL [Concomitant]
     Dosage: 0.25 ?G, QD
     Route: 048
  15. GLAKAY [Concomitant]
     Dosage: 15 MG, TID
     Route: 048
  16. SELBEX [Concomitant]
     Dosage: 0.5 G, TID
     Route: 048
  17. LIPITOR [Concomitant]
     Dosage: 10 MG, QD
     Route: 048
  18. NICORANTA [Concomitant]
     Dosage: 5 MG, TID
     Route: 048

REACTIONS (1)
  - HAEMATOCHEZIA [None]
